FAERS Safety Report 4480049-3 (Version None)
Quarter: 2004Q3

REPORT INFORMATION
  Report Type: 
  Country: None (occurrence: None)
  Receive Date: 20040923
  Receipt Date: 20040518
  Transmission Date: 20050211
  Serious: No
  Sender: FDA-Public Use
  Company Number: USA040465454

PATIENT
  Age: 72 Year
  Sex: Female
  Weight: 51 kg

DRUGS (12)
  1. FORTEO [Suspect]
     Indication: OSTEOPOROSIS
     Dosage: 20 UG DAY
     Dates: start: 20040220
  2. FOSAMAX [Concomitant]
  3. ZANTAC [Concomitant]
  4. CALCIUM GLUCONATE [Concomitant]
  5. WELCHOL [Concomitant]
  6. ASPIRIN [Concomitant]
  7. CELEBREX [Concomitant]
  8. ZESTRIL [Concomitant]
  9. SULFAMETHOXAZOLE [Concomitant]
  10. TRIAMTERENE [Concomitant]
  11. SINGULAIR [Concomitant]
  12. WELCHOL [Concomitant]

REACTIONS (5)
  - FEELING HOT [None]
  - MUSCLE SPASMS [None]
  - PRODUCTIVE COUGH [None]
  - RESPIRATORY DISORDER [None]
  - SINUSITIS [None]
